FAERS Safety Report 11913639 (Version 3)
Quarter: 2017Q1

REPORT INFORMATION
  Report Type: Spontaneous
  Country: US (occurrence: US)
  Receive Date: 20160113
  Receipt Date: 20170130
  Transmission Date: 20170428
  Serious: No
  Sender: FDA-Public Use
  Company Number: US-PFIZER INC-2015478143

PATIENT
  Age: 69 Year
  Sex: Female

DRUGS (3)
  1. LETROZOLE. [Concomitant]
     Active Substance: LETROZOLE
     Dosage: UNK
  2. IBRANCE [Suspect]
     Active Substance: PALBOCICLIB
     Dosage: 100 MG, CYCLIC (DAILY FOR 21 OUT OF 28)
     Dates: start: 20150827
  3. FEMARA [Concomitant]
     Active Substance: LETROZOLE
     Dosage: UNK

REACTIONS (12)
  - Tremor [Unknown]
  - Fatigue [Unknown]
  - Nausea [Unknown]
  - Vomiting [Unknown]
  - Diarrhoea [Unknown]
  - Appetite disorder [Unknown]
  - Pain [Not Recovered/Not Resolved]
  - Movement disorder [Unknown]
  - Arthralgia [Unknown]
  - Pain in extremity [Unknown]
  - Asthenia [Unknown]
  - Constipation [Unknown]
